FAERS Safety Report 9547570 (Version 2)
Quarter: 2014Q4

REPORT INFORMATION
  Report Type: Spontaneous
  Country: US (occurrence: None)
  Receive Date: 20130920
  Receipt Date: 20141006
  Transmission Date: 20150529
  Serious: Yes (Other)
  Sender: FDA-Public Use
  Company Number: CO-UL-US-2013-002

PATIENT
  Age: 24 Year
  Sex: Female

DRUGS (1)
  1. BENZYL ALCOHOL [Suspect]
     Active Substance: BENZYL ALCOHOL
     Indication: EPIDURAL INJECTION
     Route: 008

REACTIONS (3)
  - Paralysis flaccid [None]
  - Exposure during pregnancy [None]
  - Drug administration error [None]
